FAERS Safety Report 16809363 (Version 2)
Quarter: 2019Q3

REPORT INFORMATION
  Report Type: Report from Study
  Country: US (occurrence: US)
  Receive Date: 20190916
  Receipt Date: 20190923
  Transmission Date: 20191005
  Serious: Yes (Other)
  Sender: FDA-Public Use
  Company Number: PHEH2019US037792

PATIENT
  Age: 63 Year
  Sex: Female

DRUGS (1)
  1. MAYZENT [Suspect]
     Active Substance: SIPONIMOD
     Indication: SECONDARY PROGRESSIVE MULTIPLE SCLEROSIS
     Dosage: 2 MG, QD
     Route: 048

REACTIONS (5)
  - Headache [Unknown]
  - Constipation [Unknown]
  - Abdominal pain upper [Unknown]
  - Sinusitis [Unknown]
  - Dysarthria [Unknown]

NARRATIVE: CASE EVENT DATE: 20190911
